FAERS Safety Report 7491511-3 (Version None)
Quarter: 2011Q2

REPORT INFORMATION
  Report Type: 
  Country: None (occurrence: None)
  Receive Date: 20110519
  Receipt Date: 20110517
  Transmission Date: 20111010
  Serious: Yes (Death)
  Sender: FDA-Public Use
  Company Number: PHHY2011DO42173

PATIENT
  Age: 84 Year
  Sex: Female

DRUGS (5)
  1. EXELON [Suspect]
     Indication: AMNESIA
     Dosage: PATCH 5
     Route: 062
  2. ATROVENT [Concomitant]
     Dosage: UNK UKN, UNK
  3. OXYGEN [Concomitant]
     Dosage: UNK UKN, UNK
  4. ALBUTEROL [Concomitant]
     Dosage: UNK UKN, UNK
  5. PULMICORT [Concomitant]
     Dosage: UNK UKN, UNK

REACTIONS (1)
  - INFARCTION [None]
